FAERS Safety Report 8248639-X (Version None)
Quarter: 2012Q1

REPORT INFORMATION
  Report Type: 
  Country: None (occurrence: None)
  Receive Date: 20120331
  Receipt Date: 20120319
  Transmission Date: 20120608
  Serious: Yes (Other)
  Sender: FDA-Public Use
  Company Number: GB-AMGEN-GBRSP2012018699

PATIENT
  Age: 14 Year
  Sex: Male
  Weight: 97.9 kg

DRUGS (2)
  1. RAMIPRIL [Concomitant]
     Dosage: 2.5 MG, 1X/DAY
  2. ENBREL [Suspect]
     Indication: PRODUCT USED FOR UNKNOWN INDICATION
     Dosage: 25 MG, 2X/WEEK
     Route: 058
     Dates: start: 20111026, end: 20120220

REACTIONS (6)
  - DIZZINESS [None]
  - INJECTION SITE ERYTHEMA [None]
  - HEADACHE [None]
  - NAUSEA [None]
  - FATIGUE [None]
  - INJECTION SITE SWELLING [None]
